FAERS Safety Report 6150207-0 (Version None)
Quarter: 2009Q2

REPORT INFORMATION
  Report Type: 
  Country: None (occurrence: None)
  Receive Date: 20090407
  Receipt Date: 20090327
  Transmission Date: 20091009
  Serious: Yes (Hospitalization)
  Sender: FDA-Public Use
  Company Number: 2009JP001841

PATIENT
  Age: 85 Year
  Sex: Female

DRUGS (2)
  1. VESICARE [Suspect]
     Dosage: 5 MG,  /D, ORAL
     Route: 048
     Dates: start: 20080501, end: 20090306
  2. LASIX [Concomitant]

REACTIONS (2)
  - BLOOD CREATINE PHOSPHOKINASE INCREASED [None]
  - ELECTROCARDIOGRAM QT PROLONGED [None]
